FAERS Safety Report 21098933 (Version 1)
Quarter: 2022Q3

REPORT INFORMATION
  Report Type: Spontaneous
  Country: US (occurrence: None)
  Receive Date: 20220718
  Receipt Date: 20220718
  Transmission Date: 20221027
  Serious: No
  Sender: FDA-Public Use
  Company Number: None

PATIENT
  Age: 41 Year
  Sex: Female
  Weight: 81 kg

DRUGS (13)
  1. BUPROPION [Suspect]
     Active Substance: BUPROPION
     Indication: Depression
     Dosage: OTHER QUANTITY : 1 TABLET(S);?FREQUENCY : TWICE A DAY;?
     Route: 048
     Dates: start: 20220703
  2. BUPROPION [Suspect]
     Active Substance: BUPROPION
     Indication: Anxiety
  3. BUPROPION [Suspect]
     Active Substance: BUPROPION
     Indication: Attention deficit hyperactivity disorder
  4. Bupropion SR 150mg PO BID [Concomitant]
  5. Buspirone 7.5 mg PO BID [Concomitant]
  6. pantoprazole 20 mg PO QOD [Concomitant]
  7. valcyclovir 1000 mg PO QD [Concomitant]
  8. sertraline 12.5 mg PO QD [Concomitant]
  9. Propranolol 10 mg PO BID PRN [Concomitant]
  10. MAGNESIUM GLYCINATE [Concomitant]
     Active Substance: MAGNESIUM GLYCINATE
  11. FISH OIL [Concomitant]
     Active Substance: FISH OIL
  12. CALCIUM CITRATE [Concomitant]
     Active Substance: CALCIUM CITRATE
  13. VITAMIN D [Concomitant]
     Active Substance: VITAMIN D NOS

REACTIONS (4)
  - Product substitution issue [None]
  - Diarrhoea [None]
  - Psychomotor hyperactivity [None]
  - Product odour abnormal [None]

NARRATIVE: CASE EVENT DATE: 20220703
